FAERS Safety Report 7493395-6 (Version None)
Quarter: 2011Q2

REPORT INFORMATION
  Report Type: 
  Country: None (occurrence: None)
  Receive Date: 20110520
  Receipt Date: 20110509
  Transmission Date: 20111010
  Serious: Yes (Hospitalization)
  Sender: FDA-Public Use
  Company Number: JP-PFIZER INC-2011106903

PATIENT
  Age: 79 Year
  Sex: Female
  Weight: 35 kg

DRUGS (1)
  1. CELECOXIB [Suspect]
     Indication: BACK PAIN
     Dosage: 100 MG, BID
     Route: 048
     Dates: start: 20100510

REACTIONS (1)
  - SUBARACHNOID HAEMORRHAGE [None]
